FAERS Safety Report 5666585-2 (Version None)
Quarter: 2008Q1

REPORT INFORMATION
  Report Type: 
  Country: None (occurrence: None)
  Receive Date: 20080315
  Receipt Date: 20071218
  Transmission Date: 20080703
  Serious: No
  Sender: FDA-Public Use
  Company Number: US-ABBOTT-07P-163-0431080-00

PATIENT
  Sex: Male
  Weight: 83.99 kg

DRUGS (3)
  1. HUMIRA [Suspect]
     Indication: CROHN'S DISEASE
     Route: 058
     Dates: start: 20071001
  2. ANTIBIOTICS [Concomitant]
     Indication: SKIN LACERATION
     Dosage: USE FOR 10 DAYS
     Route: 048
     Dates: start: 20071201, end: 20071201
  3. ANTIBIOTICS [Concomitant]
     Indication: LOCALISED INFECTION

REACTIONS (2)
  - LOCALISED INFECTION [None]
  - SKIN LACERATION [None]
